FAERS Safety Report 14617037 (Version 1)
Quarter: 2018Q1

REPORT INFORMATION
  Report Type: Report from Study
  Country: US (occurrence: US)
  Receive Date: 20180309
  Receipt Date: 20180309
  Transmission Date: 20180509
  Serious: Yes (Death)
  Sender: FDA-Public Use
  Company Number: US-BAYER-2018-040011

PATIENT
  Sex: Female

DRUGS (8)
  1. DILTIAZEM ER [Concomitant]
     Active Substance: DILTIAZEM
  2. MORPHINE SULFATE. [Concomitant]
     Active Substance: MORPHINE SULFATE
  3. GABAPENTIN. [Concomitant]
     Active Substance: GABAPENTIN
  4. LISINOPRIL. [Concomitant]
     Active Substance: LISINOPRIL
  5. PREDNISONE. [Concomitant]
     Active Substance: PREDNISONE
  6. GERITOL [FERRIC AMMONIUM CITRATE,METHIONINE,VITAMIN B NOS] [Concomitant]
  7. TRAZODONE [Concomitant]
     Active Substance: TRAZODONE HYDROCHLORIDE
  8. NEXAVAR [Suspect]
     Active Substance: SORAFENIB
     Indication: LABORATORY TEST ABNORMAL
     Dosage: 200 MG, BID (200 MG QAM AND QPM)
     Route: 048
     Dates: start: 20171023, end: 20180227

REACTIONS (4)
  - Unevaluable event [None]
  - Product use in unapproved indication [None]
  - Off label use [None]
  - Death [Fatal]
